FAERS Safety Report 21831281 (Version 1)
Quarter: 2023Q1

REPORT INFORMATION
  Report Type: Spontaneous
  Country: US (occurrence: US)
  Receive Date: 20230106
  Receipt Date: 20230106
  Transmission Date: 20230418
  Serious: No
  Sender: FDA-Public Use
  Company Number: US-PFIZER INC-202300004998

PATIENT
  Age: 74 Year
  Sex: Female
  Weight: 97.52 kg

DRUGS (1)
  1. VYNDAMAX [Suspect]
     Active Substance: TAFAMIDIS
     Indication: Cardiac failure
     Dosage: 61 MG, 1X/DAY
     Dates: end: 20221231

REACTIONS (4)
  - Dizziness [Unknown]
  - Confusional state [Unknown]
  - Cognitive disorder [Unknown]
  - Off label use [Unknown]
